FAERS Safety Report 9384459 (Version 2)
Quarter: 2013Q3

REPORT INFORMATION
  Report Type: Report from Study
  Country: RU (occurrence: RU)
  Receive Date: 20130705
  Receipt Date: 20130717
  Transmission Date: 20140515
  Serious: Yes (Hospitalization)
  Sender: FDA-Public Use
  Company Number: RU-SANOFI-AVENTIS-2013SA004104

PATIENT
  Age: 59 Year
  Sex: Male
  Weight: 82 kg

DRUGS (5)
  1. CABAZITAXEL [Suspect]
     Indication: PROSTATE CANCER METASTATIC
     Route: 042
     Dates: start: 20120403, end: 20120403
  2. CABAZITAXEL [Suspect]
     Indication: PROSTATE CANCER METASTATIC
     Route: 042
     Dates: start: 20121227, end: 20121227
  3. PREDNISOLONE [Suspect]
     Indication: PROSTATE CANCER METASTATIC
     Route: 048
     Dates: start: 20120403, end: 20130102
  4. DICLOFENAC [Concomitant]
     Route: 054
     Dates: start: 20120327
  5. METAMIZOLE SODIUM [Concomitant]
     Route: 048
     Dates: start: 20120819

REACTIONS (1)
  - Haemorrhagic erosive gastritis [Recovered/Resolved]
